FAERS Safety Report 5764759-3 (Version None)
Quarter: 2008Q2

REPORT INFORMATION
  Report Type: 
  Country: None (occurrence: None)
  Receive Date: 20080611
  Receipt Date: 20080604
  Transmission Date: 20081010
  Serious: Yes (Life-Threatening, Hospitalization)
  Sender: FDA-Public Use
  Company Number: NO-MERCK-0805NOR00003

PATIENT
  Age: 45 Year
  Sex: Female

DRUGS (3)
  1. SINGULAIR [Suspect]
     Indication: ASTHMA
     Route: 048
     Dates: start: 20060609, end: 20060610
  2. DOXYCYCLINE HYCLATE [Concomitant]
     Indication: BRONCHITIS
     Route: 048
     Dates: start: 20060610, end: 20060610
  3. ACETYLCYSTEINE [Concomitant]
     Indication: BRONCHITIS
     Route: 048
     Dates: start: 20060610, end: 20060610

REACTIONS (6)
  - ANAPHYLACTIC SHOCK [None]
  - ANGIOEDEMA [None]
  - ASTHMA [None]
  - CARDIAC ARREST [None]
  - LOSS OF CONSCIOUSNESS [None]
  - SYNCOPE [None]
